FAERS Safety Report 8298809-X (Version None)
Quarter: 2012Q2

REPORT INFORMATION
  Report Type: 
  Country: None (occurrence: None)
  Receive Date: 20120416
  Receipt Date: 20120416
  Transmission Date: 20120825
  Serious: No
  Sender: FDA-Public Use
  Company Number: None

PATIENT
  Age: 62 Year
  Sex: Female

DRUGS (1)
  1. ERYTHROMYCIN BASE [Suspect]
     Dates: start: 20090909, end: 20100201

REACTIONS (2)
  - LIVER INJURY [None]
  - LIPIDS INCREASED [None]
